FAERS Safety Report 7715611-5 (Version None)
Quarter: 2011Q3

REPORT INFORMATION
  Report Type: 
  Country: None (occurrence: None)
  Receive Date: 20110810
  Receipt Date: 20110601
  Transmission Date: 20111222
  Serious: No
  Sender: FDA-Public Use
  Company Number: 1000021045

PATIENT
  Age: 51 Year
  Sex: Female

DRUGS (11)
  1. PROTONIX [Concomitant]
  2. SAVELLA [Suspect]
     Indication: FIBROMYALGIA
     Dosage: 100 MG (50 MG, 2 IN 1 D), ORAL
     Route: 048
     Dates: start: 20100701, end: 20110522
  3. ESTRADIOL [Concomitant]
  4. TYLENOL (ACETAMINOPHEN) (ACETAMINOPHEN) [Concomitant]
  5. DICLOFENAC SODIUM [Concomitant]
  6. MULTIVITAMINS (MULTIVITAMINS) (MULTIVITAMINS) [Concomitant]
  7. VITAMIN D (VITAMIN D) (VITAMIN D) [Concomitant]
  8. HYDROCODONE (HYDROCODONE) (HYDROCODONE) [Concomitant]
  9. ALBUTEROL (ALBUTEROL (ALBUTEROL) [Concomitant]
  10. LOVAZA (OMEGA-2-ACID ETHYL ESTERS)  (OMEGA-2-ACID ETHYL ESTERS) [Concomitant]
  11. SAVELLA [Suspect]
     Indication: FIBROMYALGIA
     Dosage: 12.5 MG (12.5 MG, 1 IN 1 D), ORAL, 25 MG (12.5 MG, 2 IN 1 D), ORAL, 50 MG( 25 MG, 2 IN 1 D), ORAL
     Route: 048
     Dates: start: 20100701, end: 20100701

REACTIONS (1)
  - HEADACHE [None]
